APPROVED DRUG PRODUCT: BROMANYL
Active Ingredient: BROMODIPHENHYDRAMINE HYDROCHLORIDE; CODEINE PHOSPHATE
Strength: 12.5MG/5ML;10MG/5ML
Dosage Form/Route: SYRUP;ORAL
Application: A088343 | Product #001
Applicant: ALPHARMA US PHARMACEUTICALS DIVISION
Approved: Aug 15, 1984 | RLD: No | RS: No | Type: DISCN